FAERS Safety Report 26090592 (Version 1)
Quarter: 2025Q4

REPORT INFORMATION
  Report Type: Spontaneous
  Country: US (occurrence: US)
  Receive Date: 20251126
  Receipt Date: 20251126
  Transmission Date: 20260118
  Serious: Yes (Other)
  Sender: COOPERSURGICAL
  Company Number: US-COOPERSURGICAL, INC.-2025CPS008147

PATIENT
  Age: 36 Year
  Sex: Female
  Weight: 89.796 kg

DRUGS (1)
  1. PARAGARD T 380A [Suspect]
     Active Substance: COPPER
     Dosage: UNK
     Route: 015
     Dates: start: 20070705

REACTIONS (16)
  - Reproductive complication associated with device [Unknown]
  - Surgery [Recovered/Resolved]
  - Uterine polyp [Recovered/Resolved]
  - Device breakage [Recovered/Resolved]
  - Foreign body in urogenital tract [Recovered/Resolved]
  - Complication of device removal [Recovered/Resolved]
  - Anxiety [Unknown]
  - Sexual dysfunction [Unknown]
  - Emotional distress [Unknown]
  - Intermenstrual bleeding [Unknown]
  - Heavy menstrual bleeding [Unknown]
  - Menometrorrhagia [Not Recovered/Not Resolved]
  - Dyspareunia [Not Recovered/Not Resolved]
  - Menstrual disorder [Unknown]
  - Vaginal infection [Unknown]
  - Pelvic pain [Not Recovered/Not Resolved]

NARRATIVE: CASE EVENT DATE: 20141001
